FAERS Safety Report 17679455 (Version 1)
Quarter: 2020Q2

REPORT INFORMATION
  Report Type: Spontaneous
  Country: US (occurrence: US)
  Receive Date: 20200416
  Receipt Date: 20200416
  Transmission Date: 20200714
  Serious: Yes (Hospitalization)
  Sender: FDA-Public Use
  Company Number: None

PATIENT
  Age: 76 Year
  Sex: Female

DRUGS (35)
  1. DIGOXIN. [Concomitant]
     Active Substance: DIGOXIN
  2. TRIAMCINOLON CRE [Concomitant]
  3. ESBRIET [Suspect]
     Active Substance: PIRFENIDONE
     Indication: IDIOPATHIC PULMONARY FIBROSIS
     Route: 048
     Dates: start: 20151006
  4. BENZONATATE. [Concomitant]
     Active Substance: BENZONATATE
  5. BUMETANIDE. [Concomitant]
     Active Substance: BUMETANIDE
  6. CLINDAMYCIN. [Concomitant]
     Active Substance: CLINDAMYCIN
  7. CYANOCOBALAM [Concomitant]
     Active Substance: CYANOCOBALAMIN
  8. FOLBEE [Concomitant]
     Active Substance: CYANOCOBALAMIN\FOLIC ACID\PYRIDOXINE HYDROCHLORIDE
  9. MAGOXIDE [Concomitant]
  10. METHYLPRED [Concomitant]
     Active Substance: METHYLPREDNISOLONE
  11. PONARIS [Concomitant]
  12. POT CHLORIDE [Concomitant]
     Active Substance: POTASSIUM CHLORIDE
  13. URSODIOL. [Concomitant]
     Active Substance: URSODIOL
  14. CYCLOBENZAPR [Concomitant]
     Active Substance: CYCLOBENZAPRINE
  15. MATXIM LA [Concomitant]
  16. METRONIDAZOL [Concomitant]
     Active Substance: METRONIDAZOLE
  17. AZELASTINE. [Concomitant]
     Active Substance: AZELASTINE HYDROCHLORIDE
  18. FLORASTOR [Concomitant]
     Active Substance: SACCHAROMYCES CEREVISIAE
  19. OMEPRAZOLE. [Concomitant]
     Active Substance: OMEPRAZOLE
  20. POT CL MICRO [Concomitant]
  21. FLUCONAZOLE. [Concomitant]
     Active Substance: FLUCONAZOLE
  22. LOSARTAN POT [Concomitant]
     Active Substance: LOSARTAN POTASSIUM
  23. RHOPRESSA [Concomitant]
     Active Substance: NETARSUDIL MESYLATE
  24. ROPINIROLE. [Concomitant]
     Active Substance: ROPINIROLE
  25. DYMISTA [Concomitant]
     Active Substance: AZELASTINE HYDROCHLORIDE\FLUTICASONE PROPIONATE
  26. LUMIGAN [Concomitant]
     Active Substance: BIMATOPROST
  27. METOPROL TAR [Concomitant]
  28. ONDANSETRON [Concomitant]
     Active Substance: ONDANSETRON
  29. ROSUVASTATIN. [Concomitant]
     Active Substance: ROSUVASTATIN
  30. AZELAIC ACID. [Concomitant]
     Active Substance: AZELAIC ACID
  31. DOXYCYCLHYC [Concomitant]
  32. JANUMET XR [Concomitant]
     Active Substance: METFORMIN HYDROCHLORIDE\SITAGLIPTIN PHOSPHATE
  33. NITROGLYCRN [Concomitant]
  34. BUSPIRONE [Concomitant]
     Active Substance: BUSPIRONE HYDROCHLORIDE
  35. ELIQUIS [Concomitant]
     Active Substance: APIXABAN

REACTIONS (1)
  - Blood magnesium decreased [None]

NARRATIVE: CASE EVENT DATE: 202003
